FAERS Safety Report 8092498-5 (Version None)
Quarter: 2012Q1

REPORT INFORMATION
  Report Type: 
  Country: None (occurrence: None)
  Receive Date: 20120128
  Receipt Date: 20110829
  Transmission Date: 20120608
  Serious: No
  Sender: FDA-Public Use
  Company Number: US-ABBOTT-11P-163-0849780-00

PATIENT
  Sex: Male
  Weight: 120.76 kg

DRUGS (7)
  1. HUMIRA [Suspect]
     Indication: RHEUMATOID ARTHRITIS
  2. HUMIRA [Suspect]
     Indication: CROHN'S DISEASE
  3. EXFORGE [Concomitant]
     Indication: HYPERTENSION
  4. UNKNOWN MEDICATION [Concomitant]
     Indication: BIPOLAR DISORDER
  5. PROBIOTICS [Concomitant]
     Indication: CROHN'S DISEASE
  6. ZYRTEC [Concomitant]
     Indication: HYPERSENSITIVITY
  7. PENTASA [Concomitant]
     Indication: CROHN'S DISEASE

REACTIONS (3)
  - BACK PAIN [None]
  - INJECTION SITE PAIN [None]
  - INTERVERTEBRAL DISC DEGENERATION [None]
